FAERS Safety Report 4983904-0 (Version None)
Quarter: 2006Q2

REPORT INFORMATION
  Report Type: 
  Country: None (occurrence: None)
  Receive Date: 20060426
  Receipt Date: 20050930
  Transmission Date: 20061013
  Serious: Yes (Death, Hospitalization, Other)
  Sender: FDA-Public Use
  Company Number: US-MERCK-0510USA00892

PATIENT
  Age: 73 Year
  Sex: Male
  Weight: 73 kg

DRUGS (1)
  1. VIOXX [Suspect]
     Indication: PLEURAL EFFUSION
     Route: 048
     Dates: end: 20021114

REACTIONS (28)
  - ANGINA PECTORIS [None]
  - ANOREXIA [None]
  - ANTINUCLEAR ANTIBODY POSITIVE [None]
  - ARRHYTHMIA [None]
  - BACK PAIN [None]
  - BLADDER DISORDER [None]
  - CARDIAC FAILURE CONGESTIVE [None]
  - CARDIOMYOPATHY [None]
  - CEREBROVASCULAR ACCIDENT [None]
  - DIVERTICULUM [None]
  - DYSPHAGIA [None]
  - GENERALISED OEDEMA [None]
  - HYDRONEPHROSIS [None]
  - IDIOPATHIC THROMBOCYTOPENIC PURPURA [None]
  - INJURY [None]
  - KYPHOSIS [None]
  - MALNUTRITION [None]
  - MYOCARDIAL INFARCTION [None]
  - OEDEMA PERIPHERAL [None]
  - ORGAN FAILURE [None]
  - PATHOLOGICAL FRACTURE [None]
  - PLEURAL EFFUSION [None]
  - POLYP [None]
  - PULMONARY EMBOLISM [None]
  - RENAL FAILURE ACUTE [None]
  - RIB FRACTURE [None]
  - SPLEEN DISORDER [None]
  - THROMBOSIS [None]
